FAERS Safety Report 17830741 (Version 1)
Quarter: 2020Q2

REPORT INFORMATION
  Report Type: Spontaneous
  Country: CN (occurrence: CN)
  Receive Date: 20200527
  Receipt Date: 20200527
  Transmission Date: 20200714
  Serious: Yes (Hospitalization)
  Sender: FDA-Public Use
  Company Number: CN-BAXTER-2020BAX010799

PATIENT
  Age: 43 Year
  Sex: Male
  Weight: 70 kg

DRUGS (8)
  1. 5% GLUCOSE  INJECTION [Suspect]
     Active Substance: DEXTROSE
     Indication: MEDICATION DILUTION
     Dosage: FIRST TO THIRD CYCLE, PIRARUBICIN HYDROCHLORIDE + 5% GLUCOSE
     Route: 041
  2. 5% GLUCOSE  INJECTION [Suspect]
     Active Substance: DEXTROSE
     Dosage: FOURTH CYCLE, PIRARUBICIN HYDROCHLORIDE 50 MG+ 5% GLUCOSE 100 ML
     Route: 041
     Dates: start: 20200501, end: 20200502
  3. PIRARUBICIN HYDROCHLORIDE [Suspect]
     Active Substance: PIRARUBICIN HYDROCHLORIDE
     Dosage: FOURTH CYCLE, PIRARUBICIN HYDROCHLORIDE 50 MG+ 5% GLUCOSE 100 ML
     Route: 041
     Dates: start: 20200501, end: 20200502
  4. ENDOXAN [Suspect]
     Active Substance: CYCLOPHOSPHAMIDE
     Dosage: FOURTH CYCLE, CYCLOPHOSPHAMIDE 1000 MG+ 0.9% SODIUM CHLORIDE 1000 ML
     Route: 041
     Dates: start: 20200501, end: 20200502
  5. PIRARUBICIN HYDROCHLORIDE [Suspect]
     Active Substance: PIRARUBICIN HYDROCHLORIDE
     Indication: BREAST CANCER MALE
     Dosage: FIRST TO THIRD CYCLE, PIRARUBICIN HYDROCHLORIDE + 5% GLUCOSE
     Route: 041
  6. ENDOXAN [Suspect]
     Active Substance: CYCLOPHOSPHAMIDE
     Indication: BREAST CANCER MALE
     Dosage: FIRST TO THIRD CYCLE, CYCLOPHOSPHAMIDE + 0.9% SODIUM CHLORIDE
     Route: 041
  7. 0.9% SODIUM CHLORIDE INJECTION [Suspect]
     Active Substance: SODIUM CHLORIDE
     Indication: MEDICATION DILUTION
     Dosage: FIRST TO THIRD CYCLE, CYCLOPHOSPHAMIDE + 0.9% SODIUM CHLORIDE
     Route: 041
  8. 0.9% SODIUM CHLORIDE INJECTION [Suspect]
     Active Substance: SODIUM CHLORIDE
     Dosage: FOURTH CYCLE, CYCLOPHOSPHAMIDE 1000 MG+ 0.9% SODIUM CHLORIDE 1000 ML
     Route: 041
     Dates: start: 20200501, end: 20200502

REACTIONS (3)
  - Chills [Recovered/Resolved]
  - Pyrexia [Recovered/Resolved]
  - Bone marrow failure [Recovered/Resolved]

NARRATIVE: CASE EVENT DATE: 20200510
